FAERS Safety Report 8127014-2 (Version None)
Quarter: 2012Q1

REPORT INFORMATION
  Report Type: 
  Country: None (occurrence: None)
  Receive Date: 20120210
  Receipt Date: 20120131
  Transmission Date: 20120608
  Serious: Yes (Other)
  Sender: FDA-Public Use
  Company Number: US-JNJFOC-20120200933

PATIENT
  Sex: Female
  Weight: 43.09 kg

DRUGS (4)
  1. INFLIXIMAB, RECOMBINANT [Suspect]
     Indication: CROHN'S DISEASE
     Dosage: 34 INFUSIONS IN TOTAL
     Route: 042
     Dates: start: 20060727, end: 20110929
  2. ANTIDEPRESSANT [Concomitant]
  3. NARCOTIC ANALGESICS, NOS [Concomitant]
  4. ANTISPASMODIC [Concomitant]

REACTIONS (1)
  - HERPES ZOSTER [None]
